FAERS Safety Report 7228065-2 (Version None)
Quarter: 2011Q1

REPORT INFORMATION
  Report Type: 
  Country: None (occurrence: None)
  Receive Date: 20110114
  Receipt Date: 20110105
  Transmission Date: 20110831
  Serious: Yes (Hospitalization)
  Sender: FDA-Public Use
  Company Number: CA-ASTRAZENECA-2011SE00675

PATIENT
  Age: 72 Year
  Sex: Male

DRUGS (5)
  1. SYMBICORT [Suspect]
     Indication: ASTHMA
     Dosage: 200 TWO PUFFS BID
     Route: 055
     Dates: start: 20101129
  2. DRUG FOR HYPERTENSION [Concomitant]
  3. LIPITOR [Concomitant]
  4. PRIMIDONE [Concomitant]
  5. MORPHINE [Concomitant]

REACTIONS (13)
  - RENAL DISORDER [None]
  - PAIN [None]
  - DIARRHOEA [None]
  - FLANK PAIN [None]
  - PYELONEPHRITIS [None]
  - PYREXIA [None]
  - SOMNOLENCE [None]
  - NAUSEA [None]
  - METABOLIC ACIDOSIS [None]
  - ASTHMA [None]
  - GROIN PAIN [None]
  - HEADACHE [None]
  - DIZZINESS [None]
